FAERS Safety Report 7913038-4 (Version None)
Quarter: 2011Q4

REPORT INFORMATION
  Report Type: 
  Country: None (occurrence: None)
  Receive Date: 20111114
  Receipt Date: 20111104
  Transmission Date: 20120403
  Serious: Yes (Other)
  Sender: FDA-Public Use
  Company Number: BR-ASTRAZENECA-2011SE67384

PATIENT
  Age: 82 Year
  Sex: Female

DRUGS (2)
  1. SYMBICORT [Suspect]
     Dosage: 320/9 MCG UNKNOWN FREQUENCY
     Route: 055
  2. SYMBICORT [Suspect]
     Dosage: 160/4.5 MCG UNKNOWN FREQUENCY
     Route: 055

REACTIONS (1)
  - CEREBROVASCULAR ACCIDENT [None]
